FAERS Safety Report 23991629 (Version 1)
Quarter: 2024Q2

REPORT INFORMATION
  Report Type: Report from Study
  Country: PL (occurrence: PL)
  Receive Date: 20240619
  Receipt Date: 20240619
  Transmission Date: 20240715
  Serious: Yes (Death, Other)
  Sender: FDA-Public Use
  Company Number: PL-GSK-PL2023GSK039245

PATIENT

DRUGS (1)
  1. MEPOLIZUMAB [Suspect]
     Active Substance: MEPOLIZUMAB
     Indication: Hypereosinophilic syndrome
     Dosage: 300 MG, Q6W
     Dates: start: 20191002

REACTIONS (2)
  - Glioblastoma [Fatal]
  - Neoplasm recurrence [Fatal]

NARRATIVE: CASE EVENT DATE: 20230227
